FAERS Safety Report 25454830 (Version 1)
Quarter: 2025Q2

REPORT INFORMATION
  Report Type: Report from Study
  Country: CA (occurrence: CA)
  Receive Date: 20250619
  Receipt Date: 20250619
  Transmission Date: 20250716
  Serious: Yes (Other)
  Sender: CELLTRION
  Company Number: CA-CELLTRION INC.-2024CA029949

PATIENT

DRUGS (8)
  1. USTEKINUMAB [Suspect]
     Active Substance: USTEKINUMAB
     Indication: Crohn^s disease
     Dosage: N/A Q 4 WEEKS (CONCENTRATION: 90 MG/ 1.0 ML)/ 1 EVERY 4 WEEKS
     Route: 058
     Dates: start: 20241124
  2. STELARA [Suspect]
     Active Substance: USTEKINUMAB
     Indication: Crohn^s disease
     Dosage: 90MG Q 4 WEEK/ 1 EVERY 4 WEEKS
     Dates: start: 2020
  3. MESALAMINE [Concomitant]
     Active Substance: MESALAMINE
  4. AMITRIPTYLINE HYDROCHLORIDE [Concomitant]
     Active Substance: AMITRIPTYLINE HYDROCHLORIDE
  5. MONTELUKAST [Concomitant]
     Active Substance: MONTELUKAST
  6. SLYND [Concomitant]
     Active Substance: DROSPIRENONE
  7. VIT D [VITAMIN D NOS] [Concomitant]
  8. CANNABIDIOL [Concomitant]
     Active Substance: CANNABIDIOL

REACTIONS (12)
  - Loss of consciousness [Not Recovered/Not Resolved]
  - Somnolence [Not Recovered/Not Resolved]
  - Vertigo [Not Recovered/Not Resolved]
  - Heat stroke [Not Recovered/Not Resolved]
  - Vision blurred [Not Recovered/Not Resolved]
  - Auditory disorder [Not Recovered/Not Resolved]
  - Fatigue [Not Recovered/Not Resolved]
  - Nausea [Not Recovered/Not Resolved]
  - Headache [Not Recovered/Not Resolved]
  - Dizziness [Not Recovered/Not Resolved]
  - Intentional product use issue [Not Recovered/Not Resolved]
  - Intentional product use issue [Unknown]

NARRATIVE: CASE EVENT DATE: 20241124
